FAERS Safety Report 9027083 (Version 6)
Quarter: 2013Q2

REPORT INFORMATION
  Report Type: Report from Study
  Country: FR (occurrence: FR)
  Receive Date: 20130123
  Receipt Date: 20130506
  Transmission Date: 20140414
  Serious: Yes (Hospitalization, Other)
  Sender: FDA-Public Use
  Company Number: FR-AMGEN-FRANI2013003788

PATIENT
  Age: 63 Year
  Sex: Female

DRUGS (7)
  1. PANITUMUMAB [Suspect]
     Indication: COLORECTAL CANCER
     Dosage: 378 MG, UNK
     Route: 042
     Dates: start: 20120620, end: 20120704
  2. FOLINIC ACID [Concomitant]
     Dosage: 350 MG, UNK
     Route: 042
     Dates: start: 20120620, end: 20120725
  3. 5-FLUOROURACIL [Concomitant]
     Dosage: 2688 MG, UNK
     Route: 042
     Dates: start: 20120620, end: 20120726
  4. ATODERM [Concomitant]
     Dosage: UNK
     Dates: start: 20120620
  5. TOLEXINE [Concomitant]
     Dosage: 100 MG, QD
     Dates: start: 20120620, end: 20120706
  6. ERYFLUID [Concomitant]
     Dosage: UNK
     Dates: start: 20120622
  7. IALUSET [Concomitant]
     Dosage: UNK
     Dates: start: 20120622

REACTIONS (4)
  - Xerosis [Not Recovered/Not Resolved]
  - Photosensitivity reaction [Recovered/Resolved]
  - Dermatitis acneiform [Unknown]
  - Mucosal inflammation [Unknown]
